FAERS Safety Report 4742034-3 (Version None)
Quarter: 2005Q3

REPORT INFORMATION
  Report Type: 
  Country: None (occurrence: None)
  Receive Date: 20050727
  Receipt Date: 20050105
  Transmission Date: 20060218
  Serious: No
  Sender: FDA-Public Use
  Company Number: PAGL/05/01/LIT

PATIENT
  Age: 44 Year
  Sex: Male
  Weight: 88 kg

DRUGS (12)
  1. PANGLOBULIN [Suspect]
     Indication: PANEL-REACTIVE ANTIBODY INCREASED
     Dosage: 1 G/KG B.W., O.A.D., I.V.
     Route: 042
  2. CYCLOSPORINE [Concomitant]
  3. MYCOPHENOLATE MOFETIL (MYCOPHENOLATE MOFETIL) [Concomitant]
  4. AMIODARONE HCL [Concomitant]
  5. ASPIRIN [Concomitant]
  6. FUROSEMIDE [Concomitant]
  7. PRAVASTATIN [Concomitant]
  8. THIAMINE (THIAMINE) [Concomitant]
  9. IRBESARTAN [Concomitant]
  10. ALENDRONATE SODIUM [Concomitant]
  11. CARVEDILOL [Concomitant]
  12. MILRINONE (MILRINONE) [Concomitant]

REACTIONS (4)
  - ANURIA [None]
  - RENAL FAILURE ACUTE [None]
  - URINE ABNORMALITY [None]
  - URINE OUTPUT DECREASED [None]
